FAERS Safety Report 11080761 (Version 1)
Quarter: 2015Q2

REPORT INFORMATION
  Report Type: Spontaneous
  Country: US (occurrence: None)
  Receive Date: 20150430
  Receipt Date: 20150430
  Transmission Date: 20150821
  Serious: Yes (Hospitalization)
  Sender: FDA-Public Use
  Company Number: None

PATIENT
  Age: 59 Year
  Sex: Female
  Weight: 61.69 kg

DRUGS (5)
  1. CRIZOTINIB [Suspect]
     Active Substance: CRIZOTINIB
     Indication: BREAST CANCER METASTATIC
     Dosage: 200 MG - 2 CPAS BID PO?
     Route: 048
     Dates: start: 20150115, end: 20150212
  2. SUNITINIB [Suspect]
     Active Substance: SUNITINIB
     Indication: BREAST CANCER METASTATIC
     Route: 048
     Dates: start: 20150115, end: 20150212
  3. ALBUTEROL. [Concomitant]
     Active Substance: ALBUTEROL
  4. TRAMADOL [Concomitant]
     Active Substance: TRAMADOL
  5. ATIVAN [Concomitant]
     Active Substance: LORAZEPAM

REACTIONS (2)
  - Therapy cessation [None]
  - Pleural effusion [None]

NARRATIVE: CASE EVENT DATE: 20150210
